FAERS Safety Report 19614163 (Version 1)
Quarter: 2021Q3

REPORT INFORMATION
  Report Type: Spontaneous
  Country: PK (occurrence: PK)
  Receive Date: 20210727
  Receipt Date: 20210727
  Transmission Date: 20211014
  Serious: Yes (Other)
  Sender: FDA-Public Use
  Company Number: PK-NOVOPROD-831653

PATIENT
  Age: 828 Month
  Sex: Male
  Weight: 70 kg

DRUGS (2)
  1. MIXTARD 30 [Suspect]
     Active Substance: INSULIN HUMAN
     Indication: TYPE 2 DIABETES MELLITUS
     Dosage: 50 IU, QD
     Route: 058
     Dates: start: 20180326
  2. MIXTARD 30 [Suspect]
     Active Substance: INSULIN HUMAN
     Dosage: UNK(DOSE INCREASED)
     Route: 058

REACTIONS (2)
  - Knee operation [Unknown]
  - Diabetes mellitus inadequate control [Not Recovered/Not Resolved]

NARRATIVE: CASE EVENT DATE: 20210616
